FAERS Safety Report 25165849 (Version 3)
Quarter: 2025Q2

REPORT INFORMATION
  Report Type: Spontaneous
  Country: US (occurrence: US)
  Receive Date: 20250407
  Receipt Date: 20250513
  Transmission Date: 20250716
  Serious: Yes (Hospitalization, Other)
  Sender: BRISTOL-MYERS SQUIBB COMPANY
  Company Number: US-BRISTOL-MYERS SQUIBB COMPANY-2025-050955

PATIENT
  Age: 76 Year
  Sex: Male
  Weight: 87.54 kg

DRUGS (2)
  1. POMALYST [Suspect]
     Active Substance: POMALIDOMIDE
     Indication: Plasma cell myeloma
     Dosage: DAILY 21 DAYS ON 7 DAYS OFF
     Route: 048
     Dates: start: 202501
  2. POMALYST [Suspect]
     Active Substance: POMALIDOMIDE
     Dosage: 2MG DAILY FOR 3 WEEKS ON, THEN 1 WEEK OFF
     Route: 048

REACTIONS (3)
  - Pneumonia [Unknown]
  - Rash [Recovering/Resolving]
  - Malaise [Unknown]
